FAERS Safety Report 6898306-X (Version None)
Quarter: 2010Q3

REPORT INFORMATION
  Report Type: 
  Country: None (occurrence: None)
  Receive Date: 20100802
  Receipt Date: 20071008
  Transmission Date: 20110219
  Serious: No
  Sender: FDA-Public Use
  Company Number: US-PFIZER INC-2007064636

PATIENT
  Sex: Male
  Weight: 131.5 kg

DRUGS (1)
  1. LYRICA [Suspect]
     Indication: NEURALGIA
     Dates: start: 20070801

REACTIONS (1)
  - DRUG INEFFECTIVE [None]
